FAERS Safety Report 7755411-3 (Version None)
Quarter: 2011Q3

REPORT INFORMATION
  Report Type: 
  Country: None (occurrence: None)
  Receive Date: 20110916
  Receipt Date: 20110903
  Transmission Date: 20111222
  Serious: No
  Sender: FDA-Public Use
  Company Number: US-B.I. PHARMACEUTICALS,INC./RIDGEFIELD-2011-BP-21503BP

PATIENT
  Sex: Male

DRUGS (2)
  1. SPIRIVA [Suspect]
     Indication: PULMONARY FIBROSIS
     Route: 055
  2. SPIRIVA [Suspect]
     Route: 048
     Dates: start: 20110903, end: 20110903

REACTIONS (1)
  - INCORRECT ROUTE OF DRUG ADMINISTRATION [None]
